FAERS Safety Report 5367862-5 (Version None)
Quarter: 2007Q2

REPORT INFORMATION
  Report Type: 
  Country: None (occurrence: None)
  Receive Date: 20070622
  Receipt Date: 20070613
  Transmission Date: 20071010
  Serious: Yes (Other)
  Sender: FDA-Public Use
  Company Number: RU-ELI_LILLY_AND_COMPANY-RU200705000361

PATIENT
  Age: 66 Year
  Sex: Male

DRUGS (3)
  1. CYMBALTA [Suspect]
     Dosage: 60 MG, EACH MORNING
     Route: 048
     Dates: start: 20070420, end: 20070401
  2. CYMBALTA [Suspect]
     Dosage: 60 MG, EACH MORNING
     Route: 048
     Dates: start: 20070401
  3. FLUVOXAMINE MALEATE [Concomitant]
     Dosage: 100 MG, EACH EVENING

REACTIONS (4)
  - BLOOD PRESSURE DECREASED [None]
  - DIZZINESS [None]
  - LOSS OF CONSCIOUSNESS [None]
  - VISUAL DISTURBANCE [None]
